FAERS Safety Report 24106207 (Version 1)
Quarter: 2024Q3

REPORT INFORMATION
  Report Type: Spontaneous
  Country: CN (occurrence: CN)
  Receive Date: 20240717
  Receipt Date: 20240717
  Transmission Date: 20241016
  Serious: Yes (Other)
  Sender: NOVARTIS
  Company Number: CN-002147023-NVSC2024CN143615

PATIENT
  Age: 53 Year
  Sex: Female

DRUGS (12)
  1. CYCLOSPORINE [Suspect]
     Active Substance: CYCLOSPORINE
     Indication: Allogenic stem cell transplantation
     Dosage: 70 MG, QD (FROM DAY +4)
     Route: 065
  2. CYCLOPHOSPHAMIDE [Concomitant]
     Active Substance: CYCLOPHOSPHAMIDE
     Indication: Allogenic stem cell transplantation
     Dosage: 100 MG/KG (ON DAYS ?5 TO ?4)
     Route: 065
  3. CYCLOPHOSPHAMIDE [Concomitant]
     Active Substance: CYCLOPHOSPHAMIDE
     Indication: Precursor T-lymphoblastic lymphoma/leukaemia
     Dosage: 50 MG/KG (ON DAY +4)
     Route: 065
  4. LAPINE T-LYMPHOCYTE IMMUNE GLOBULIN [Concomitant]
     Active Substance: LAPINE T-LYMPHOCYTE IMMUNE GLOBULIN
     Indication: Allogenic stem cell transplantation
     Dosage: 5.2 MG/KG (ON DAYS ?2 TO ?1)
     Route: 065
  5. LAPINE T-LYMPHOCYTE IMMUNE GLOBULIN [Concomitant]
     Active Substance: LAPINE T-LYMPHOCYTE IMMUNE GLOBULIN
     Indication: Precursor T-lymphoblastic lymphoma/leukaemia
  6. ETOPOSIDE [Concomitant]
     Active Substance: ETOPOSIDE
     Indication: Allogenic stem cell transplantation
     Dosage: 20 MG/KG (ON DAY ?5 TO ?4)
     Route: 065
  7. ETOPOSIDE [Concomitant]
     Active Substance: ETOPOSIDE
     Indication: Precursor T-lymphoblastic lymphoma/leukaemia
  8. MYCOPHENOLATE SODIUM [Concomitant]
     Active Substance: MYCOPHENOLATE SODIUM
     Indication: Graft versus host disease
     Dosage: 720 MG, QD (ON DAYS +4 TO +34)
     Route: 065
  9. VALACYCLOVIR HYDROCHLORIDE [Concomitant]
     Active Substance: VALACYCLOVIR HYDROCHLORIDE
     Indication: Viral infection
     Dosage: 1.2 G, QD
     Route: 065
  10. VALACYCLOVIR HYDROCHLORIDE [Concomitant]
     Active Substance: VALACYCLOVIR HYDROCHLORIDE
     Indication: Fungal infection
  11. POSACONAZOLE [Concomitant]
     Active Substance: POSACONAZOLE
     Indication: Viral infection
     Dosage: 0.3 G, QD
     Route: 065
  12. POSACONAZOLE [Concomitant]
     Active Substance: POSACONAZOLE
     Indication: Fungal infection

REACTIONS (6)
  - Encephalitis autoimmune [Unknown]
  - Hallucination [Unknown]
  - Memory impairment [Unknown]
  - Affect lability [Unknown]
  - Muscular weakness [Unknown]
  - Cytomegalovirus infection [Unknown]
